FAERS Safety Report 18653802 (Version 1)
Quarter: 2020Q4

REPORT INFORMATION
  Report Type: Spontaneous
  Country: US (occurrence: US)
  Receive Date: 20201222
  Receipt Date: 20201222
  Transmission Date: 20210114
  Serious: No
  Sender: FDA-Public Use
  Company Number: None

PATIENT
  Age: 84 Year
  Sex: Male

DRUGS (7)
  1. DEXAMETHASONE 10 MG/M [Concomitant]
  2. ONDANSETRON 4 MG/2 ML VIAL [Concomitant]
  3. CISPLATIN 100 MG/100 ML VIAL [Concomitant]
  4. GEMCITABINE. [Suspect]
     Active Substance: GEMCITABINE
     Route: 041
  5. FOSAPREPITANT 150 MG VIAL [Concomitant]
  6. MAGNESIUM SULFATE 50% (2 ML) [Concomitant]
  7. POTASSIUM CL 2 MEQ/ML 20 ML [Concomitant]

REACTIONS (1)
  - Hospice care [None]

NARRATIVE: CASE EVENT DATE: 20201222
